FAERS Safety Report 14822455 (Version 1)
Quarter: 2018Q2

REPORT INFORMATION
  Report Type: Spontaneous
  Country: NL (occurrence: NL)
  Receive Date: 20180427
  Receipt Date: 20180427
  Transmission Date: 20180711
  Serious: Yes (Hospitalization)
  Sender: FDA-Public Use
  Company Number: NL-PFIZER INC-2018168693

PATIENT
  Sex: Male
  Weight: 105 kg

DRUGS (5)
  1. ZYPREXA [Interacting]
     Active Substance: OLANZAPINE
     Indication: MANIA
     Dosage: 10 MG, 1X/DAY (1DD1)
     Route: 050
     Dates: start: 20100627
  2. DEPAKINE [Interacting]
     Active Substance: VALPROATE SODIUM
     Indication: MOOD SWINGS
     Dosage: 500 MG, 1X/DAY (1DD1)
     Route: 050
     Dates: start: 20100527
  3. LORAZEPAM. [Suspect]
     Active Substance: LORAZEPAM
     Dosage: 2.5 MG, 2X/DAY (2DD1)
     Route: 050
     Dates: start: 20100517
  4. HALDOL [Interacting]
     Active Substance: HALOPERIDOL
     Indication: MANIA
     Dosage: 1 MG, 1X/DAY (1MG DD)
     Route: 050
     Dates: start: 20100517
  5. DEPAKINE [Interacting]
     Active Substance: VALPROATE SODIUM
     Dosage: 2000MG
     Route: 050

REACTIONS (3)
  - Drug interaction [Unknown]
  - Blood cholesterol increased [Recovering/Resolving]
  - Weight increased [Recovering/Resolving]
